FAERS Safety Report 7021726-X (Version None)
Quarter: 2010Q3

REPORT INFORMATION
  Report Type: 
  Country: None (occurrence: None)
  Receive Date: 20100930
  Receipt Date: 20100922
  Transmission Date: 20110219
  Serious: Yes (Hospitalization, Other)
  Sender: FDA-Public Use
  Company Number: US-BIOGENIDEC-2010BI031213

PATIENT
  Age: 59 Year
  Sex: Female

DRUGS (3)
  1. AVONEX [Suspect]
     Indication: MULTIPLE SCLEROSIS
     Route: 030
     Dates: start: 20080401
  2. MEDICATIONS (NOS) [Concomitant]
  3. PERCOCET [Concomitant]

REACTIONS (3)
  - BLOOD SODIUM DECREASED [None]
  - FATIGUE [None]
  - WRONG DRUG ADMINISTERED [None]
